FAERS Safety Report 10961094 (Version 4)
Quarter: 2015Q3

REPORT INFORMATION
  Report Type: Spontaneous
  Country: JP (occurrence: JP)
  Receive Date: 20150327
  Receipt Date: 20150916
  Transmission Date: 20151125
  Serious: Yes (Death, Life-Threatening, Other)
  Sender: FDA-Public Use
  Company Number: JP-SA-2015SA036224

PATIENT
  Age: 54 Year
  Sex: Male
  Weight: 75 kg

DRUGS (16)
  1. ZYPREXA [Concomitant]
     Active Substance: OLANZAPINE
     Dates: start: 20150226
  2. NOVOLIN R [Concomitant]
     Active Substance: INSULIN HUMAN
     Dates: start: 20150306, end: 20150311
  3. 5-FU [Suspect]
     Active Substance: FLUOROURACIL
     Indication: PANCREATIC CARCINOMA
     Dosage: ONCE IN 2 DAYS
     Route: 041
     Dates: start: 20150224, end: 20150224
  4. ALOXI [Concomitant]
     Active Substance: PALONOSETRON HYDROCHLORIDE
     Dates: start: 20150224, end: 20150225
  5. LASIX [Concomitant]
     Active Substance: FUROSEMIDE
     Dates: start: 20150310, end: 20150310
  6. CAMPTO [Suspect]
     Active Substance: IRINOTECAN
     Indication: PANCREATIC CARCINOMA
     Route: 041
     Dates: start: 20150224, end: 20150224
  7. EMEND [Concomitant]
     Active Substance: APREPITANT
     Dates: start: 20150224, end: 20150225
  8. ZOMETA [Concomitant]
     Active Substance: ZOLEDRONIC ACID
     Dates: start: 20150203, end: 20150203
  9. PREDOPA [Concomitant]
     Active Substance: DOPAMINE\DOPAMINE HYDROCHLORIDE
     Dates: start: 20150310, end: 20150312
  10. ELPLAT [Suspect]
     Active Substance: OXALIPLATIN
     Indication: PANCREATIC CARCINOMA
     Route: 041
     Dates: start: 20150224, end: 20150224
  11. DECADRON [Concomitant]
     Active Substance: DEXAMETHASONE
     Dates: start: 20150225, end: 20150226
  12. LEVOFOLINATE [Suspect]
     Active Substance: LEVOLEUCOVORIN CALCIUM
     Indication: PANCREATIC CARCINOMA
     Dosage: INFUSION
     Route: 041
     Dates: start: 20150224, end: 20150224
  13. ATARAX-P [Concomitant]
     Active Substance: HYDROXYZINE HYDROCHLORIDE
     Dates: start: 20150204
  14. DEXART [Concomitant]
     Active Substance: DEXAMETHASONE SODIUM PHOSPHATE
     Dates: start: 20150224, end: 20150224
  15. ATROPINE SULFATE. [Concomitant]
     Active Substance: ATROPINE SULFATE
     Dates: start: 20150224, end: 20150224
  16. ALBUMIN [Concomitant]
     Active Substance: ALBUMIN (HUMAN)
     Dates: start: 20150304, end: 20150311

REACTIONS (14)
  - White blood cell count decreased [Recovered/Resolved]
  - Sepsis [Fatal]
  - Disseminated intravascular coagulation [Fatal]
  - Nausea [Unknown]
  - Decreased appetite [Not Recovered/Not Resolved]
  - Febrile neutropenia [Fatal]
  - Platelet count decreased [Fatal]
  - Anaemia [Recovered/Resolved]
  - Hyperhidrosis [Recovered/Resolved]
  - Abdominal pain [Recovered/Resolved]
  - Hiccups [Recovered/Resolved]
  - Diarrhoea [Recovered/Resolved]
  - Rhinorrhoea [Recovered/Resolved]
  - Hyperglycaemia [Not Recovered/Not Resolved]

NARRATIVE: CASE EVENT DATE: 2015
